FAERS Safety Report 8914630 (Version 2)
Quarter: 2013Q1

REPORT INFORMATION
  Report Type: Spontaneous
  Country: AU (occurrence: AU)
  Receive Date: 20121119
  Receipt Date: 20130125
  Transmission Date: 20140127
  Serious: Yes (Life-Threatening)
  Sender: FDA-Public Use
  Company Number: AU-ROCHE-1155808

PATIENT
  Sex: Female

DRUGS (6)
  1. HERCEPTIN [Suspect]
     Indication: BREAST CANCER
     Route: 065
     Dates: start: 20120111
  2. LAPATINIB [Concomitant]
  3. DOCETAXEL [Concomitant]
  4. ABRAXANE [Concomitant]
  5. EXEMESTANE [Concomitant]
  6. LETROZOLE [Concomitant]

REACTIONS (4)
  - Metastases to central nervous system [Unknown]
  - Disease progression [Unknown]
  - Drug effect incomplete [Unknown]
  - Neuropathy peripheral [Unknown]
